FAERS Safety Report 9073520 (Version 1)
Quarter: 2013Q1

REPORT INFORMATION
  Report Type: Report from Study
  Country: US (occurrence: US)
  Receive Date: 20130129
  Receipt Date: 20130129
  Transmission Date: 20140127
  Serious: No
  Sender: FDA-Public Use
  Company Number: US-ABBOTT-12P-163-0929494-00

PATIENT
  Age: 64 Year
  Sex: Female

DRUGS (16)
  1. HUMIRA 40 MG/0.8 ML PEN [Suspect]
     Indication: CROHN^S DISEASE
     Dates: start: 20110819, end: 20120324
  2. NEXIUM [Concomitant]
     Indication: PRODUCT USED FOR UNKNOWN INDICATION
  3. ATENOLOL [Concomitant]
     Indication: ATRIAL FIBRILLATION
     Dosage: 25MG 1-2 PILLS DAILY(TAKES 1 DAILY, INCREASES TO 2 DAILY DEPENDING ON ATRIAL FIB AND PVC^S
  4. ATENOLOL [Concomitant]
     Indication: VENTRICULAR EXTRASYSTOLES
  5. LORAZEPAM [Concomitant]
     Indication: NERVOUSNESS
  6. ASTHMANEX [Concomitant]
     Indication: ASTHMA
     Route: 055
  7. ECOTRIN [Concomitant]
     Indication: VENTRICULAR EXTRASYSTOLES
  8. ECOTRIN [Concomitant]
     Indication: ATRIAL FIBRILLATION
  9. B12 [Concomitant]
     Indication: VITAMIN B12 DEFICIENCY
  10. CRANBERRY FRUIT [Concomitant]
     Indication: PRODUCT USED FOR UNKNOWN INDICATION
  11. OMEGA 3 FISH OIL [Concomitant]
     Indication: PRODUCT USED FOR UNKNOWN INDICATION
     Dosage: 1200MG 1-2 DAILY
  12. VITAMIN D [Concomitant]
     Indication: PRODUCT USED FOR UNKNOWN INDICATION
  13. DILTIAZEM CD [Concomitant]
     Indication: HYPERTENSION
  14. CALTRATE WITH VITAMIN D [Concomitant]
     Indication: PRODUCT USED FOR UNKNOWN INDICATION
     Dosage: 1-2 DAILY
  15. CENTRUM CARDIO VITAMIN [Concomitant]
     Indication: PRODUCT USED FOR UNKNOWN INDICATION
  16. VITAMIN C [Concomitant]
     Indication: PRODUCT USED FOR UNKNOWN INDICATION
     Dosage: 500MG DAILY

REACTIONS (4)
  - Upper limb fracture [Recovering/Resolving]
  - Nasopharyngitis [Recovering/Resolving]
  - Urinary tract infection [Recovering/Resolving]
  - Fall [Recovering/Resolving]
